FAERS Safety Report 10094147 (Version 2)
Quarter: 2014Q2

REPORT INFORMATION
  Report Type: Spontaneous
  Country: IT (occurrence: IT)
  Receive Date: 20140422
  Receipt Date: 20140605
  Transmission Date: 20141212
  Serious: Yes (Disabling)
  Sender: FDA-Public Use
  Company Number: IT-BRISTOL-MYERS SQUIBB COMPANY-20630943

PATIENT
  Age: 65 Year
  Sex: Male
  Weight: 82 kg

DRUGS (8)
  1. METFORMIN HCL [Suspect]
     Indication: TYPE 1 DIABETES MELLITUS
     Route: 048
     Dates: end: 20140317
  2. CAPRELSA [Suspect]
     Indication: MEDULLARY THYROID CANCER
     Dosage: 1 DF:30 X 300MG?REDUCED TO 200 DAILY
     Route: 048
     Dates: start: 20140128
  3. TRIATEC [Concomitant]
     Indication: HYPERTENSION
     Dosage: 1 DF: 14X5 MG
  4. GLIBOMET [Concomitant]
     Indication: TYPE 1 DIABETES MELLITUS
     Dosage: 1 DF: 60X 400MG 5MG?FILM COATED TABLET
     Route: 048
  5. GLUCOBAY [Concomitant]
     Indication: TYPE 1 DIABETES MELLITUS
     Dosage: 1DF: 40X50MG?TABLETS
  6. LANREOTIDE [Concomitant]
     Dosage: 120 MG INJECTION SOLUTION, PRE-FILLED SYRINGE
     Route: 058
  7. LEVOTHYROXINE [Concomitant]
  8. LANTUS [Concomitant]
     Indication: TYPE 1 DIABETES MELLITUS
     Dosage: 1DF: 22 DOSING UNIT

REACTIONS (2)
  - Blood creatinine increased [Recovering/Resolving]
  - Renal failure [Recovering/Resolving]
